FAERS Safety Report 4752448-3 (Version None)
Quarter: 2005Q3

REPORT INFORMATION
  Report Type: 
  Country: None (occurrence: None)
  Receive Date: 20050823
  Receipt Date: 20050808
  Transmission Date: 20060218
  Serious: Yes (Death, Other)
  Sender: FDA-Public Use
  Company Number: MAG-2005-0000347

PATIENT
  Age: 73 Year
  Sex: Male

DRUGS (33)
  1. OXYCODONE HCL [Suspect]
     Indication: CANCER PAIN
     Dosage: SEE IMAGE
     Route: 048
     Dates: start: 20040921, end: 20041011
  2. OXYCODONE HCL [Suspect]
     Indication: CANCER PAIN
     Dosage: SEE IMAGE
     Route: 048
     Dates: start: 20041012, end: 20041121
  3. OXYCODONE HCL [Suspect]
     Indication: CANCER PAIN
     Dosage: SEE IMAGE
     Route: 048
     Dates: start: 20041122, end: 20041128
  4. OXYCODONE HCL [Suspect]
     Indication: CANCER PAIN
     Dosage: SEE IMAGE
     Route: 048
     Dates: start: 20041129, end: 20041205
  5. OXYCODONE HCL [Suspect]
     Indication: CANCER PAIN
     Dosage: SEE IMAGE
     Route: 048
     Dates: start: 20041206, end: 20041219
  6. OXYCODONE HCL [Suspect]
     Indication: CANCER PAIN
     Dosage: SEE IMAGE
     Route: 048
     Dates: start: 20050104, end: 20050113
  7. OXYCODONE HCL [Suspect]
     Indication: CANCER PAIN
     Dosage: SEE IMAGE
     Route: 048
     Dates: start: 20041220, end: 20050127
  8. OXYCODONE HCL [Suspect]
     Indication: CANCER PAIN
     Dosage: SEE IMAGE
     Route: 048
     Dates: start: 20050114, end: 20050204
  9. OXYCODONE HCL [Suspect]
     Indication: CANCER PAIN
     Dosage: SEE IMAGE
     Route: 048
     Dates: start: 20050128, end: 20050204
  10. KETALAR [Suspect]
     Indication: CANCER PAIN
     Dosage: SEE IMAGE
     Route: 042
     Dates: start: 20041224, end: 20050103
  11. KETALAR [Suspect]
     Indication: CANCER PAIN
     Dosage: SEE IMAGE
     Route: 042
     Dates: start: 20050104, end: 20050113
  12. KETALAR [Suspect]
     Indication: CANCER PAIN
     Dosage: SEE IMAGE
     Route: 042
     Dates: start: 20050114, end: 20050204
  13. BUP-4 (PROPIVERINE HYDROCHLORIDE) [Concomitant]
  14. FERROMIA (FEROUS CITRATE) [Concomitant]
  15. NAUZELIN (DOMPERIDONE) [Concomitant]
  16. MAGNESIUM OXIDE (MAGNESIUM OXIDE) [Concomitant]
  17. ETODOLAC [Concomitant]
  18. PRIMPERAN INJ [Concomitant]
  19. ESTRACYT (ESTRAMUSTINE PHOSPHATE SODIUM) [Concomitant]
  20. DECADRON [Concomitant]
  21. SEROTONE (AZASETRON HYDROCHLORIDE) [Concomitant]
  22. TAXOTERE [Concomitant]
  23. BISPHONAL [Concomitant]
  24. ALLOID G [Concomitant]
  25. LAXOBERON (SODIUM PICOSULFATE) [Concomitant]
  26. LECICARBON (SODIUM PHOSPHATE MONOBASIC, SODIUM BICARBONATE) [Concomitant]
  27. MORPHINE [Concomitant]
  28. RITALIN [Concomitant]
  29. LOXONIN (LOXOPROFEN SODIUM) [Concomitant]
  30. XYLOCAINE [Concomitant]
  31. DUROTEP [Concomitant]
  32. TAGAMET [Concomitant]
  33. SELBEX (TEPRENONE) [Concomitant]

REACTIONS (6)
  - CONSTIPATION [None]
  - DELIRIUM [None]
  - DELUSIONAL DISORDER, UNSPECIFIED TYPE [None]
  - DISORIENTATION [None]
  - MALIGNANT NEOPLASM PROGRESSION [None]
  - PROSTATE CANCER [None]
